FAERS Safety Report 4316645-3 (Version None)
Quarter: 2004Q1

REPORT INFORMATION
  Report Type: 
  Country: None (occurrence: None)
  Receive Date: 20040312
  Receipt Date: 20040305
  Transmission Date: 20041129
  Serious: Yes (Life-Threatening)
  Sender: FDA-Public Use
  Company Number: 7553

PATIENT
  Age: 82 Year
  Sex: Female

DRUGS (12)
  1. METHOTREXATE [Suspect]
     Indication: RHEUMATOID ARTHRITIS
     Dosage: 7.5 MG WEEKLY; PO
     Route: 048
     Dates: start: 19990101, end: 20031224
  2. THYROXINE [Concomitant]
  3. FRUSEMIDE [Concomitant]
  4. FOLIC ACID [Concomitant]
  5. NORTHISTERONE/OESTRADIOL [Concomitant]
  6. CALCIUM/VITAMIN D [Concomitant]
  7. EFORMOTEROL [Concomitant]
  8. BECLOMETHASONE DIPROPIONATE [Concomitant]
  9. IPRATROPIUM BROMIDE [Concomitant]
  10. TRAMADOL HCL [Concomitant]
  11. ALBUTEROL SULFATE [Concomitant]
  12. NYSTATIN [Concomitant]

REACTIONS (4)
  - MOUTH ULCERATION [None]
  - NEUTROPENIA [None]
  - THROMBOCYTOPENIA [None]
  - WHITE BLOOD CELL COUNT DECREASED [None]
